FAERS Safety Report 24911073 (Version 1)
Quarter: 2025Q1

REPORT INFORMATION
  Report Type: Spontaneous
  Country: US (occurrence: None)
  Receive Date: 20250131
  Receipt Date: 20250131
  Transmission Date: 20250409
  Serious: Yes (Hospitalization)
  Sender: FDA-CTU
  Company Number: None

PATIENT
  Age: 54 Year
  Sex: Female

DRUGS (6)
  1. OCTAGAM IMMUNE GLOBULIN (HUMAN) [Suspect]
     Active Substance: HUMAN IMMUNOGLOBULIN G
     Indication: Myasthenia gravis crisis
     Route: 042
     Dates: start: 202408
  2. SOD CHLOR POS STERILE F (10ML) [Concomitant]
  3. METHYLPREDISOLONE SUCC [Concomitant]
  4. DIPHENHYDRAMlNE (ALLERGY) [Concomitant]
  5. SODIUM CHLOR (250ML/BAG) [Concomitant]
  6. BACTERIOSTATIC WATER MDV [Concomitant]

REACTIONS (1)
  - Myasthenia gravis crisis [None]

NARRATIVE: CASE EVENT DATE: 20250127
